FAERS Safety Report 9399085 (Version 1)
Quarter: 2013Q3

REPORT INFORMATION
  Report Type: Spontaneous
  Country: AU (occurrence: AU)
  Receive Date: 20130715
  Receipt Date: 20130715
  Transmission Date: 20140515
  Serious: Yes (Other)
  Sender: FDA-Public Use
  Company Number: AU-AMGEN-AUSSP2013018097

PATIENT
  Age: 67 Year
  Sex: Female

DRUGS (2)
  1. XGEVA [Suspect]
     Indication: BONE CANCER
     Dosage: 120 MG, QMO
     Route: 058
     Dates: start: 20121129
  2. TAMOXIFEN [Concomitant]

REACTIONS (4)
  - Metastasis [Unknown]
  - Bone disorder [Unknown]
  - Mammogram abnormal [Unknown]
  - Arthritis [Not Recovered/Not Resolved]
